FAERS Safety Report 20034725 (Version 3)
Quarter: 2022Q2

REPORT INFORMATION
  Report Type: Spontaneous
  Country: US (occurrence: US)
  Receive Date: 20211104
  Receipt Date: 20220406
  Transmission Date: 20220721
  Serious: Yes (Hospitalization, Other)
  Sender: FDA-Public Use
  Company Number: US-PFIZER INC-202101453392

PATIENT
  Age: 66 Year
  Sex: Male

DRUGS (1)
  1. METHOTREXATE SODIUM [Suspect]
     Active Substance: METHOTREXATE SODIUM
     Dosage: UNK

REACTIONS (10)
  - Toxicity to various agents [Unknown]
  - Pancytopenia [Unknown]
  - Renal failure [Unknown]
  - Acute kidney injury [Unknown]
  - Drug hypersensitivity [Unknown]
  - Sepsis [Unknown]
  - Rheumatoid arthritis [Unknown]
  - Pulmonary fibrosis [Unknown]
  - Myelosuppression [Unknown]
  - Lung opacity [Unknown]

NARRATIVE: CASE EVENT DATE: 20200101
